FAERS Safety Report 13100222 (Version 1)
Quarter: 2017Q1

REPORT INFORMATION
  Report Type: Spontaneous
  Country: US (occurrence: US)
  Receive Date: 20170110
  Receipt Date: 20170110
  Transmission Date: 20170428
  Serious: Yes (Hospitalization)
  Sender: FDA-Public Use
  Company Number: US-ROCHE-1877239

PATIENT
  Sex: Female

DRUGS (1)
  1. BONIVA [Suspect]
     Active Substance: IBANDRONATE SODIUM
     Indication: OSTEOPOROSIS
     Route: 065

REACTIONS (4)
  - Heart rate increased [Unknown]
  - Abdominal pain upper [Unknown]
  - Hypertension [Unknown]
  - Gastrooesophageal reflux disease [Unknown]
